FAERS Safety Report 7926242-6 (Version None)
Quarter: 2011Q4

REPORT INFORMATION
  Report Type: 
  Country: None (occurrence: None)
  Receive Date: 20111118
  Receipt Date: 20111110
  Transmission Date: 20120403
  Serious: Yes (Death)
  Sender: FDA-Public Use
  Company Number: CA-BIOGENIDEC-2011BI040848

PATIENT
  Age: 24 Year
  Sex: Male

DRUGS (2)
  1. GABAPENTIN [Concomitant]
  2. TYSABRI [Suspect]
     Indication: MULTIPLE SCLEROSIS
     Route: 042
     Dates: start: 20110919, end: 20111019

REACTIONS (3)
  - BLISTER [None]
  - DEATH [None]
  - RASH PRURITIC [None]
